FAERS Safety Report 9204009 (Version 2)
Quarter: 2013Q2

REPORT INFORMATION
  Report Type: Spontaneous
  Country: US (occurrence: None)
  Receive Date: 20130329
  Receipt Date: 20130515
  Transmission Date: 20140414
  Serious: Yes (Hospitalization)
  Sender: FDA-Public Use
  Company Number: JPI-P-030834

PATIENT
  Age: 24 Year
  Sex: Male

DRUGS (2)
  1. XYREM [Suspect]
     Indication: NARCOLEPSY
     Dosage: 4GM (2GM, 2 IN 1 D) ORAL
     Route: 048
     Dates: start: 20080609
  2. AMPHETAMINE [Suspect]

REACTIONS (1)
  - Physical assault [None]
